FAERS Safety Report 5750560-3 (Version None)
Quarter: 2008Q2

REPORT INFORMATION
  Report Type: 
  Country: None (occurrence: None)
  Receive Date: 20080523
  Receipt Date: 20080523
  Transmission Date: 20081010
  Serious: No
  Sender: FDA-Public Use
  Company Number: None

PATIENT
  Age: 6 Year
  Sex: Female
  Weight: 18.1439 kg

DRUGS (1)
  1. SINGULAIR [Suspect]
     Indication: MULTIPLE ALLERGIES
     Dosage: 5 MG 1 TABLET PER DAY
     Dates: start: 20060823, end: 20080329

REACTIONS (10)
  - ABDOMINAL PAIN UPPER [None]
  - ANGER [None]
  - ANOREXIA [None]
  - CRYING [None]
  - DEPRESSED MOOD [None]
  - DIET REFUSAL [None]
  - FATIGUE [None]
  - GROWING PAINS [None]
  - INSOMNIA [None]
  - PAIN IN EXTREMITY [None]
